FAERS Safety Report 18025950 (Version 3)
Quarter: 2020Q3

REPORT INFORMATION
  Report Type: Spontaneous
  Country: SE (occurrence: SE)
  Receive Date: 20200715
  Receipt Date: 20200908
  Transmission Date: 20201103
  Serious: Yes (Life-Threatening, Hospitalization, Other)
  Sender: FDA-Public Use
  Company Number: SE-PFIZER INC-2020269351

PATIENT
  Age: 46 Year
  Sex: Female

DRUGS (2)
  1. DOLCONTIN [Suspect]
     Active Substance: MORPHINE
     Dosage: UNK (50?60 TABLETS OF 100 AND 200 MG CONTROLLED?RELEASE MORPHINE SULPHATE TABLETS)
     Route: 048
  2. MORPHINE SULPHATE [Suspect]
     Active Substance: MORPHINE SULFATE
     Dosage: UNK (SOME IMMEDIATE?RELEASE MORPHINE TABLETS OF 10 MG)
     Route: 048

REACTIONS (3)
  - Constipation [Recovering/Resolving]
  - Intentional overdose [Unknown]
  - Toxicity to various agents [Recovering/Resolving]
